FAERS Safety Report 7633082-4 (Version None)
Quarter: 2011Q3

REPORT INFORMATION
  Report Type: 
  Country: None (occurrence: None)
  Receive Date: 20110725
  Receipt Date: 20110720
  Transmission Date: 20111222
  Serious: Yes (Death)
  Sender: FDA-Public Use
  Company Number: PHHY2009JP58705

PATIENT
  Sex: Female

DRUGS (10)
  1. PREDNISOLONE [Concomitant]
     Dosage: 30 MG, UNK
     Route: 048
  2. PREDNISOLONE [Concomitant]
     Dosage: 25 MG, UNK
     Route: 048
  3. PREDNISOLONE [Concomitant]
     Dosage: 5 MG, UNK
     Route: 048
     Dates: end: 20080509
  4. LETROZOLE [Suspect]
     Indication: BREAST CANCER
     Dosage: 2.5 MG, DAILY
     Route: 048
     Dates: start: 20080123, end: 20080814
  5. PREDNISOLONE [Concomitant]
     Dosage: 40 MG, UNK
     Route: 048
     Dates: start: 20080318
  6. MORPHINE HCL ELIXIR [Concomitant]
     Route: 042
     Dates: start: 20080811
  7. OXYCONTIN [Concomitant]
     Dosage: 80 MG, UNK
     Route: 048
     Dates: start: 20080113, end: 20080810
  8. PREDNISOLONE [Concomitant]
     Dosage: 20 MG, UNK
     Route: 048
  9. PREDNISOLONE [Concomitant]
     Dosage: 15 MG, UNK
     Route: 048
  10. PREDNISOLONE [Concomitant]
     Dosage: 10 MG, UNK
     Route: 048

REACTIONS (1)
  - NEOPLASM MALIGNANT [None]
